FAERS Safety Report 8580563-5 (Version None)
Quarter: 2012Q3

REPORT INFORMATION
  Report Type: 
  Country: None (occurrence: None)
  Receive Date: 20120808
  Receipt Date: 20120801
  Transmission Date: 20120928
  Serious: Yes (Other)
  Sender: FDA-Public Use
  Company Number: CHPA2012US015727

PATIENT
  Age: 79 Year
  Sex: Female

DRUGS (9)
  1. IRON [Concomitant]
  2. VITAMINS NOS [Concomitant]
  3. DRUG THERAPY NOS [Concomitant]
     Indication: DIABETES MELLITUS
  4. DRUG THERAPY NOS [Concomitant]
  5. VOLTAREN [Suspect]
     Indication: OSTEOARTHRITIS
     Dosage: VARIES
     Route: 061
  6. DRUG THERAPY NOS [Concomitant]
     Indication: BLOOD CHOLESTEROL
  7. DRUG THERAPY NOS [Concomitant]
     Indication: BLOOD PRESSURE
  8. DRUG THERAPY NOS [Concomitant]
  9. VITAMIN B COMPLEX CAP [Concomitant]

REACTIONS (6)
  - ARTHRITIS [None]
  - THERAPEUTIC RESPONSE UNEXPECTED [None]
  - PAIN [None]
  - UNDERDOSE [None]
  - ARTHROPATHY [None]
  - DRUG ADMINISTERED AT INAPPROPRIATE SITE [None]
